FAERS Safety Report 6207932-2 (Version None)
Quarter: 2009Q2

REPORT INFORMATION
  Report Type: 
  Country: None (occurrence: None)
  Receive Date: 20090529
  Receipt Date: 20080626
  Transmission Date: 20091009
  Serious: No
  Sender: FDA-Public Use
  Company Number: A0724866A

PATIENT
  Age: 65 Year
  Sex: Female

DRUGS (14)
  1. VENTOLIN [Suspect]
     Indication: ASTHMA
     Dosage: 2PUFF SIX TIMES PER DAY
     Dates: start: 20060101
  2. TARKA [Concomitant]
  3. THEOPHYLLINE [Concomitant]
  4. SINGULAIR [Concomitant]
  5. LEVOTHYROXINE SODIUM [Concomitant]
  6. OMEPRAZOLE [Concomitant]
  7. ISOSORBIDE [Concomitant]
  8. M.V.I. [Concomitant]
  9. STOOL SOFTENER [Concomitant]
  10. SEREVENT [Concomitant]
  11. FLOVENT [Concomitant]
  12. INTAL [Concomitant]
  13. SPIRIVA [Concomitant]
  14. FISH OIL CAPSULES [Concomitant]

REACTIONS (2)
  - DYSPNOEA [None]
  - PRODUCT QUALITY ISSUE [None]
